FAERS Safety Report 22180593 (Version 1)
Quarter: 2023Q2

REPORT INFORMATION
  Report Type: Spontaneous
  Country: ES (occurrence: ES)
  Receive Date: 20230406
  Receipt Date: 20230406
  Transmission Date: 20230721
  Serious: Yes (Other)
  Sender: FDA-Public Use
  Company Number: ES-SUN PHARMACEUTICAL INDUSTRIES LTD-2023RR-384162

PATIENT
  Age: 63 Year
  Sex: Female

DRUGS (5)
  1. ALLOPURINOL [Suspect]
     Active Substance: ALLOPURINOL
     Indication: Silicon granuloma
     Dosage: 200 MILLIGRAM, DAILY
     Route: 048
  2. LORATADINE [Suspect]
     Active Substance: LORATADINE
     Indication: Silicon granuloma
     Dosage: 10 MILLIGRAM, DAILY
     Route: 065
  3. PREDNISONE [Suspect]
     Active Substance: PREDNISONE
     Indication: Silicon granuloma
     Dosage: 15 MILLIGRAM, DAILY
     Route: 048
  4. HYDROXYCHLOROQUINE [Suspect]
     Active Substance: HYDROXYCHLOROQUINE
     Indication: Silicon granuloma
     Dosage: 200 MILLIGRAM, BID
     Route: 065
  5. TRIAMCINOLONE [Suspect]
     Active Substance: TRIAMCINOLONE
     Indication: Silicon granuloma
     Dosage: 40 MG/ML
     Route: 026

REACTIONS (1)
  - Drug ineffective [Unknown]
